FAERS Safety Report 8255620-3 (Version None)
Quarter: 2012Q2

REPORT INFORMATION
  Report Type: 
  Country: None (occurrence: None)
  Receive Date: 20120403
  Receipt Date: 20120327
  Transmission Date: 20120825
  Serious: Yes (Other)
  Sender: FDA-Public Use
  Company Number: PHEH2012US001553

PATIENT
  Sex: Female

DRUGS (3)
  1. WATER PILLS [Concomitant]
     Dosage: 25 MG, UNK
  2. TEKTURNA [Suspect]
     Dosage: 300 MG, QD
  3. LOTREL [Concomitant]
     Dosage: 5/20 MG

REACTIONS (8)
  - GAIT DISTURBANCE [None]
  - LIMB DISCOMFORT [None]
  - PAIN IN EXTREMITY [None]
  - MUSCLE TIGHTNESS [None]
  - MUSCULAR WEAKNESS [None]
  - ARTERIAL OCCLUSIVE DISEASE [None]
  - MUSCULOSKELETAL PAIN [None]
  - DYSSTASIA [None]
